FAERS Safety Report 6013164-3 (Version None)
Quarter: 2008Q4

REPORT INFORMATION
  Report Type: 
  Country: None (occurrence: None)
  Receive Date: 20081217
  Receipt Date: 20081209
  Transmission Date: 20090506
  Serious: Yes (Life-Threatening, Other)
  Sender: FDA-Public Use
  Company Number: TRP_05710_2008

PATIENT
  Sex: Male
  Weight: 97.3419 kg

DRUGS (21)
  1. RIBASPHERE [Suspect]
     Indication: HEPATITIS C
     Dosage: (1200 MG QD ORAL)
     Route: 048
     Dates: start: 20071024, end: 20080502
  2. PEG-INTRON [Suspect]
     Indication: HEPATITIS C
     Dosage: (150 ?G 1X/WEEK SUBCUTANEOUS)
     Route: 058
     Dates: start: 20071024, end: 20080501
  3. ALBUTEROL [Concomitant]
  4. TIOTROPIUM [Concomitant]
  5. ATROVENT [Concomitant]
  6. METOPROLOL [Concomitant]
  7. SERTRALINE [Concomitant]
  8. HYDROCHLOROTHIAZIDE [Concomitant]
  9. FELODIPINE [Concomitant]
  10. SPIRONOLACTONE [Concomitant]
  11. ASPIRIN [Concomitant]
  12. ADVIL LIQUI-GELS [Concomitant]
  13. ATARAX [Concomitant]
  14. LISINOPRIL [Concomitant]
  15. FLUTICASONE PROPIONATE [Concomitant]
  16. ZANTAC [Concomitant]
  17. ADVAIR DISKUS 250/50 [Concomitant]
  18. SYMBICORT [Concomitant]
  19. MOMETASONE FUROATE [Concomitant]
  20. TRIHEXYPHENIDYL [Concomitant]
  21. SEROQUEL [Concomitant]

REACTIONS (1)
  - OESOPHAGEAL ADENOCARCINOMA STAGE IV [None]
